FAERS Safety Report 15240731 (Version 1)
Quarter: 2018Q3

REPORT INFORMATION
  Report Type: Spontaneous
  Country: US (occurrence: US)
  Receive Date: 20180804
  Receipt Date: 20180804
  Transmission Date: 20181010
  Serious: Yes (Life-Threatening, Hospitalization, Other)
  Sender: FDA-Public Use
  Company Number: US-AMGEN-USASP2018105448

PATIENT
  Age: 54 Year
  Sex: Male

DRUGS (1)
  1. ENBREL [Suspect]
     Active Substance: ETANERCEPT
     Indication: RHEUMATOID ARTHRITIS
     Dosage: UNK UNK, QWK
     Route: 065
     Dates: start: 2016, end: 201807

REACTIONS (7)
  - Ulcer [Unknown]
  - Pneumothorax [Unknown]
  - Pneumonia [Unknown]
  - Anaesthetic complication [Unknown]
  - Coma [Unknown]
  - Rheumatoid arthritis [Unknown]
  - Chest pain [Unknown]

NARRATIVE: CASE EVENT DATE: 201807
